FAERS Safety Report 12067639 (Version 1)
Quarter: 2016Q1

REPORT INFORMATION
  Report Type: Spontaneous
  Country: US (occurrence: None)
  Receive Date: 20160210
  Receipt Date: 20160210
  Transmission Date: 20160526
  Serious: Yes (Disabling)
  Sender: FDA-Public Use
  Company Number: None

PATIENT
  Age: 65 Year
  Sex: Female
  Weight: 90.72 kg

DRUGS (8)
  1. FRNNEGRUEK [Concomitant]
  2. COREG [Concomitant]
     Active Substance: CARVEDILOL
  3. ATROVENT HFA [Suspect]
     Active Substance: IPRATROPIUM BROMIDE
     Indication: CHRONIC OBSTRUCTIVE PULMONARY DISEASE
     Dosage: 1X PER DAY
     Route: 055
     Dates: start: 20160102, end: 20160131
  4. SPIROLACTONE [Concomitant]
     Active Substance: SPIRONOLACTONE
  5. ASPIRIN. [Concomitant]
     Active Substance: ASPIRIN
  6. VITAMIN C [Concomitant]
     Active Substance: ASCORBIC ACID
  7. BLACK COHOSH [Concomitant]
     Active Substance: BLACK COHOSH
  8. VITAMIN E [Concomitant]
     Active Substance: .ALPHA.-TOCOPHEROL

REACTIONS (6)
  - Bronchitis [None]
  - Oral discomfort [None]
  - Throat irritation [None]
  - Mouth swelling [None]
  - Respiratory tract congestion [None]
  - Pharyngeal oedema [None]

NARRATIVE: CASE EVENT DATE: 20160110
